FAERS Safety Report 13778273 (Version 1)
Quarter: 2017Q3

REPORT INFORMATION
  Report Type: Spontaneous
  Country: FR (occurrence: FR)
  Receive Date: 20170721
  Receipt Date: 20170721
  Transmission Date: 20171127
  Serious: Yes (Hospitalization, Other)
  Sender: FDA-Public Use
  Company Number: FR-ELI_LILLY_AND_COMPANY-FR201707004260

PATIENT
  Age: 72 Year
  Sex: Male

DRUGS (6)
  1. GEMZAR [Suspect]
     Active Substance: GEMCITABINE HYDROCHLORIDE
     Indication: ADENOCARCINOMA PANCREAS
     Dosage: 1800 MG, CYCLICAL
     Route: 042
     Dates: end: 20170426
  2. DESLORATADINE. [Concomitant]
     Active Substance: DESLORATADINE
     Dosage: 1 DF, DAILY
     Route: 065
  3. CREON [Concomitant]
     Active Substance: PANCRELIPASE AMYLASE\PANCRELIPASE LIPASE\PANCRELIPASE PROTEASE
     Dosage: 1 DF, TID
     Route: 065
  4. LASILIX                            /00032601/ [Concomitant]
     Active Substance: FUROSEMIDE
     Dosage: 1 DF, DAILY
     Route: 065
  5. INNOHEP [Concomitant]
     Active Substance: TINZAPARIN SODIUM
     Dosage: 1 DF, DAILY
     Route: 058
  6. CLOPIDOGREL [Concomitant]
     Active Substance: CLOPIDOGREL BISULFATE
     Dosage: 1 DF, DAILY
     Route: 065

REACTIONS (11)
  - Emphysema [Recovering/Resolving]
  - Dyspnoea [Recovering/Resolving]
  - Hypoproteinaemia [Recovering/Resolving]
  - Weight decreased [Unknown]
  - Capillary leak syndrome [Recovering/Resolving]
  - Malnutrition [Recovering/Resolving]
  - Thrombocytopenia [Recovering/Resolving]
  - Blood calcium decreased [Unknown]
  - C-reactive protein increased [Unknown]
  - Pancytopenia [Unknown]
  - Vasculitis [Unknown]

NARRATIVE: CASE EVENT DATE: 201703
